FAERS Safety Report 7597164-8 (Version None)
Quarter: 2011Q3

REPORT INFORMATION
  Report Type: 
  Country: None (occurrence: None)
  Receive Date: 20110708
  Receipt Date: 20100623
  Transmission Date: 20111222
  Serious: No
  Sender: FDA-Public Use
  Company Number: US-GLAXOSMITHKLINE-A0866774A

PATIENT
  Age: 10 Year
  Sex: Male

DRUGS (2)
  1. NO CONCURRENT MEDICATION [Concomitant]
  2. FLOVENT [Suspect]
     Indication: ASTHMA
     Dosage: 1PUFF TWICE PER DAY
     Route: 055
     Dates: start: 20100504, end: 20100504

REACTIONS (5)
  - THERMAL BURN [None]
  - DRY THROAT [None]
  - PHARYNGEAL DISORDER [None]
  - DYSPNOEA [None]
  - THROAT TIGHTNESS [None]
